FAERS Safety Report 23972119 (Version 1)
Quarter: 2024Q2

REPORT INFORMATION
  Report Type: Spontaneous
  Country: US (occurrence: None)
  Receive Date: 20240612
  Receipt Date: 20240612
  Transmission Date: 20240716
  Serious: Yes (Other)
  Sender: FDA-Public Use
  Company Number: None

PATIENT
  Age: 68 Year
  Sex: Male

DRUGS (16)
  1. MYCOPHENOLIC ACID [Suspect]
     Active Substance: MYCOPHENOLIC ACID
     Indication: Liver transplant
     Dosage: 180 MG TWICE A DAY ORAL?
     Route: 048
     Dates: start: 20220124
  2. TACROLIMUS [Suspect]
     Active Substance: TACROLIMUS
     Indication: Liver transplant
     Dosage: 2 MG TWIC A DAY ORAL
     Route: 048
     Dates: start: 20220124
  3. PREDNISONE [Concomitant]
     Active Substance: PREDNISONE
  4. Esomeprazole 20mg capsules [Concomitant]
  5. EZETIMIBE [Concomitant]
     Active Substance: EZETIMIBE
  6. METFORMIN [Concomitant]
     Active Substance: METFORMIN HYDROCHLORIDE
  7. ASPIRIN [Concomitant]
     Active Substance: ASPIRIN
  8. Entecavir 0.5mg tablets [Concomitant]
  9. Ursodiol 300mg tablets [Concomitant]
  10. Magnesium 500mg tablets [Concomitant]
  11. Gabapentin 600mg tablets [Concomitant]
  12. Atorvastatin 80mg tablets [Concomitant]
  13. Clopidogrel 75mg tablets [Concomitant]
  14. Metoprolol succinate ER 25mg tablets [Concomitant]
  15. FLUOXETINE HYDROCHLORIDE [Concomitant]
     Active Substance: FLUOXETINE HYDROCHLORIDE
  16. TAMSULOSIN [Concomitant]
     Active Substance: TAMSULOSIN

REACTIONS (2)
  - Oesophageal carcinoma [None]
  - Stent removal [None]

NARRATIVE: CASE EVENT DATE: 20240602
